FAERS Safety Report 9913367 (Version 2)
Quarter: 2014Q1

REPORT INFORMATION
  Report Type: Spontaneous
  Country: US (occurrence: US)
  Receive Date: 20140220
  Receipt Date: 20140317
  Transmission Date: 20141002
  Serious: No
  Sender: FDA-Public Use
  Company Number: US-009507513-1402USA009446

PATIENT
  Age: 20 Year
  Sex: Female
  Weight: 99.77 kg

DRUGS (1)
  1. IMPLANON [Suspect]
     Indication: CONTRACEPTION
     Dosage: 1 IMPLANT /3 YEARAS
     Route: 059
     Dates: start: 20120406

REACTIONS (3)
  - Headache [Unknown]
  - Pain in extremity [Unknown]
  - Implant site reaction [Unknown]
